FAERS Safety Report 13163440 (Version 3)
Quarter: 2017Q2

REPORT INFORMATION
  Report Type: Spontaneous
  Country: IT (occurrence: IT)
  Receive Date: 20170130
  Receipt Date: 20170422
  Transmission Date: 20170830
  Serious: Yes (Other)
  Sender: FDA-Public Use
  Company Number: IT-ALEXION PHARMACEUTICALS INC.-A201700501

PATIENT
  Age: 66 Year
  Sex: Male
  Weight: 70 kg

DRUGS (3)
  1. CELLCEPT [Concomitant]
     Active Substance: MYCOPHENOLATE MOFETIL\MYCOPHENOLATE MOFETIL HYDROCHLORIDE
     Indication: RENAL TRANSPLANT
     Dosage: 1000 MG, UNK
     Route: 048
     Dates: start: 20150326
  2. ADOPORT [Concomitant]
     Active Substance: TACROLIMUS
     Indication: RENAL TRANSPLANT
     Dosage: 2 MG, UNK
     Route: 048
     Dates: start: 20150326
  3. SOLIRIS [Suspect]
     Active Substance: ECULIZUMAB
     Indication: HAEMOLYTIC URAEMIC SYNDROME
     Dosage: 1200 MG, Q2W
     Route: 042
     Dates: start: 20150408, end: 20170123

REACTIONS (15)
  - Neutropenia [Unknown]
  - Immunosuppression [Unknown]
  - Blood lactate dehydrogenase increased [Unknown]
  - Cryptococcosis [Recovered/Resolved]
  - Cytomegalovirus infection [Recovered/Resolved]
  - Hypogammaglobulinaemia [Unknown]
  - Transplant rejection [Unknown]
  - Nausea [Unknown]
  - Haematuria [Unknown]
  - Fungaemia [Unknown]
  - Thrombosis [Unknown]
  - Platelet count decreased [Recovering/Resolving]
  - Infection [Unknown]
  - Vomiting [Unknown]
  - Pulmonary mass [Unknown]

NARRATIVE: CASE EVENT DATE: 20161223
